FAERS Safety Report 11239788 (Version 1)
Quarter: 2015Q3

REPORT INFORMATION
  Report Type: Spontaneous
  Country: US (occurrence: None)
  Receive Date: 20150701
  Receipt Date: 20150701
  Transmission Date: 20151125
  Serious: Yes (Disabling, Other)
  Sender: FDA-Public Use
  Company Number: None

PATIENT
  Age: 45 Year
  Sex: Female
  Weight: 54.43 kg

DRUGS (10)
  1. MULTI VITAMIN [Concomitant]
     Active Substance: VITAMINS
  2. DHA [Concomitant]
     Active Substance: DIETARY SUPPLEMENT
  3. SUPPLEMENTS TO COMBAT THE FLOUROQUINOLONE TOXICITY ONLY [Concomitant]
  4. VIT A [Concomitant]
  5. FISH OIL [Concomitant]
     Active Substance: FISH OIL
  6. VIT B [Concomitant]
     Active Substance: VITAMINS
  7. COQ10 [Suspect]
     Active Substance: UBIDECARENONE
  8. LEVOFLOXACIN. [Suspect]
     Active Substance: LEVOFLOXACIN
     Indication: SINUSITIS
     Dosage: 1
     Route: 048
     Dates: start: 20150429, end: 20150503
  9. TUMERIC [Concomitant]
  10. VITAMIN D [Concomitant]
     Active Substance: CHOLECALCIFEROL

REACTIONS (17)
  - Dizziness [None]
  - Respiratory disorder [None]
  - Visual impairment [None]
  - Anxiety [None]
  - Influenza like illness [None]
  - Drug interaction [None]
  - Tendonitis [None]
  - Sensory disturbance [None]
  - Diarrhoea [None]
  - Melaena [None]
  - Depression [None]
  - Arthralgia [None]
  - Insomnia [None]
  - Nightmare [None]
  - Pruritus [None]
  - Dysgeusia [None]
  - Myalgia [None]

NARRATIVE: CASE EVENT DATE: 20150429
